FAERS Safety Report 7941229-5 (Version None)
Quarter: 2011Q4

REPORT INFORMATION
  Report Type: 
  Country: None (occurrence: None)
  Receive Date: 20111122
  Receipt Date: 20111108
  Transmission Date: 20120403
  Serious: Yes (Other)
  Sender: FDA-Public Use
  Company Number: JP-2011-11510

PATIENT
  Age: 99 Year
  Sex: Female
  Weight: 31 kg

DRUGS (9)
  1. VERAPAMIL HYDROCHLORIDE [Concomitant]
  2. LASIX [Concomitant]
  3. BLOOD SUBSTITUTES (BLOOD SUBSTITUTES) INJECTION [Concomitant]
  4. PLAVIX [Concomitant]
  5. ASPARA POTASSIUM (POTASSIUM ASPARTATE) [Concomitant]
  6. DIURETICS (DIURETICS) INJECTION [Concomitant]
  7. BLOOD SUBSTITUTES (BLOOD SUBSTITUTES) INJECTION [Concomitant]
  8. GASCOOL (POTASSIUM CANRENOATE) INJECTION [Concomitant]
  9. SAMSCA [Suspect]
     Indication: CARDIAC FAILURE ACUTE
     Dosage: 15 MG MILLIGRAM(S), QD, ORAL
     Route: 048
     Dates: start: 20110830, end: 20110901

REACTIONS (2)
  - HYPERNATRAEMIA [None]
  - BLOOD UREA INCREASED [None]
